FAERS Safety Report 10396882 (Version 1)
Quarter: 2014Q1

REPORT INFORMATION
  Report Type: Spontaneous
  Country: US (occurrence: None)
  Receive Date: 20130621
  Receipt Date: 20130621
  Transmission Date: 20141002
  Serious: Yes (Other)
  Sender: FDA-Public Use
  Company Number: 061538

PATIENT
  Sex: Female

DRUGS (1)
  1. CIMZIA [Suspect]
     Indication: CROHN^S DISEASE
     Dosage: (400MG 1X/4 WEEKS),
     Dates: start: 20120607, end: 2012

REACTIONS (9)
  - Skin haemorrhage [None]
  - Haematochezia [None]
  - Rash [None]
  - Diarrhoea [None]
  - Nasopharyngitis [None]
  - Pyrexia [None]
  - Vomiting [None]
  - Upper respiratory tract infection [None]
  - Sinusitis [None]
